FAERS Safety Report 8431667 (Version 7)
Quarter: 2012Q4

REPORT INFORMATION
  Report Type: 
  Country: US (occurrence: US)
  Receive Date: 20120228
  Receipt Date: 20120828
  Transmission Date: 20130627
  Serious: Yes (Hospitalization, Other)
  Sender: FDA-Public Use
  Company Number: US-009507513-1202USA03876

PATIENT

DRUGS (10)
  1. CALCIUM (UNSPECIFIED) [Concomitant]
     Dosage: 1000-1500
  2. HORMONES (UNSPECIFIED) [Concomitant]
     Dosage: UNK
     Dates: start: 1997
  3. VITAMIN D (UNSPECIFIED) [Concomitant]
     Indication: OSTEOPOROSIS
     Dosage: UNK
  4. CHOLECALCIFEROL [Concomitant]
     Dosage: 5000 U, TIW
  5. MAGNESIUM (UNSPECIFIED) [Concomitant]
     Dosage: UNK UNK, qd
  6. MK-9278 [Concomitant]
     Dosage: 4 IU, tid
  7. THERAPY UNSPECIFIED [Concomitant]
     Dosage: UNK
  8. FOSAMAX [Suspect]
     Indication: OSTEOPOROSIS
     Dosage: 70 mg, UNK
     Route: 048
     Dates: start: 199711, end: 200704
  9. HORMONES (UNSPECIFIED) [Concomitant]
     Dates: start: 198706, end: 1998
  10. CALCIUM (UNSPECIFIED) [Concomitant]
     Indication: OSTEOPOROSIS
     Dosage: 30 mg, qd

REACTIONS (30)
  - Pelvic fracture [Unknown]
  - Femur fracture [Unknown]
  - Radius fracture [Unknown]
  - Vitamin D deficiency [Unknown]
  - Depression [Unknown]
  - Anxiety [Unknown]
  - Post-traumatic stress disorder [Unknown]
  - Body height decreased [Unknown]
  - Spinal osteoarthritis [Unknown]
  - Spinal compression fracture [Unknown]
  - Tooth disorder [Unknown]
  - Gingivitis [Unknown]
  - Bone loss [Unknown]
  - Limb asymmetry [Unknown]
  - Kyphosis [Unknown]
  - Thoracic vertebral fracture [Unknown]
  - Ulna fracture [Unknown]
  - Fall [Unknown]
  - Memory impairment [Unknown]
  - Faecal incontinence [Unknown]
  - Sciatica [Unknown]
  - Tarsal tunnel syndrome [Unknown]
  - Neuroma [Unknown]
  - Musculoskeletal chest pain [Unknown]
  - Joint contracture [Unknown]
  - Rib fracture [Unknown]
  - Rib fracture [Unknown]
  - Thoracic vertebral fracture [Unknown]
  - Fracture [Unknown]
  - Bone density decreased [Unknown]
